FAERS Safety Report 4414875-3 (Version None)
Quarter: 2004Q3

REPORT INFORMATION
  Report Type: 
  Country: None (occurrence: None)
  Receive Date: 20040804
  Receipt Date: 20040123
  Transmission Date: 20050211
  Serious: No
  Sender: FDA-Public Use
  Company Number: US-BRISTOL-MYERS SQUIBB COMPANY-12485876

PATIENT
  Age: 68 Year
  Sex: Female
  Weight: 75 kg

DRUGS (8)
  1. GLUCOVANCE [Suspect]
     Indication: DIABETES MELLITUS
     Route: 048
  2. AVANDIA [Concomitant]
  3. ZOCOR [Concomitant]
  4. PLAVIX [Concomitant]
  5. MAVIK [Concomitant]
  6. TOPROL-XL [Concomitant]
  7. ALLEGRA [Concomitant]
  8. ZYRTEC [Concomitant]

REACTIONS (1)
  - DIARRHOEA [None]
